FAERS Safety Report 18887053 (Version 2)
Quarter: 2021Q3

REPORT INFORMATION
  Report Type: Report from Study
  Country: US (occurrence: US)
  Receive Date: 20210212
  Receipt Date: 20210710
  Transmission Date: 20211014
  Serious: No
  Sender: FDA-Public Use
  Company Number: NVSC2021US026383

PATIENT
  Sex: Female

DRUGS (1)
  1. ENTRESTO [Suspect]
     Active Substance: SACUBITRIL\VALSARTAN
     Indication: PRODUCT USED FOR UNKNOWN INDICATION
     Dosage: 100 MG (49.51 MG) BID
     Route: 048
     Dates: start: 202101

REACTIONS (6)
  - Dizziness [Unknown]
  - Chest pain [Unknown]
  - Sluggishness [Unknown]
  - Hot flush [Unknown]
  - Tension [Unknown]
  - Rash [Unknown]
